FAERS Safety Report 4696803-9 (Version None)
Quarter: 2005Q2

REPORT INFORMATION
  Report Type: 
  Country: None (occurrence: None)
  Receive Date: 20050622
  Receipt Date: 20050218
  Transmission Date: 20051028
  Serious: Yes (Hospitalization)
  Sender: FDA-Public Use
  Company Number: KP-NOVOPROD-244200

PATIENT
  Age: 69 Year
  Sex: Female

DRUGS (7)
  1. NOVONORM [Suspect]
     Indication: DIABETES MELLITUS NON-INSULIN-DEPENDENT
     Dosage: 1.5 MG, QD
     Route: 048
     Dates: start: 20040728
  2. CARVEDILOL [Concomitant]
     Dosage: 15.5 MG, UNK
     Route: 048
     Dates: start: 20040714
  3. FUROSEMIDE [Concomitant]
     Dosage: 80 MG, QD
     Route: 048
     Dates: start: 20040714
  4. ITOPRIDE [Concomitant]
     Dosage: 100 MG, UNK
     Route: 048
     Dates: start: 20040714
  5. METOLAZONE [Concomitant]
     Dosage: 2.5 MG, QD
     Route: 048
     Dates: start: 20040728
  6. SPIRONOLACTONE [Concomitant]
     Dosage: 25 MG, UNK
     Route: 048
     Dates: start: 20040714
  7. WARFARIN SODIUM [Concomitant]
     Dosage: 1 MG, QD
     Route: 048
     Dates: start: 20040714

REACTIONS (3)
  - ABDOMINAL DISCOMFORT [None]
  - ASCITES [None]
  - ORAL INTAKE REDUCED [None]
